FAERS Safety Report 9115277 (Version 1)
Quarter: 2013Q1

REPORT INFORMATION
  Report Type: Report from Study
  Country: AU (occurrence: AU)
  Receive Date: 20130225
  Receipt Date: 20130225
  Transmission Date: 20140127
  Serious: Yes (Hospitalization)
  Sender: FDA-Public Use
  Company Number: AU-ROCHE-1193902

PATIENT
  Age: 59 Year
  Sex: Male

DRUGS (7)
  1. ACTEMRA [Suspect]
     Indication: RHEUMATOID ARTHRITIS
     Route: 042
     Dates: start: 20101022
  2. BRUFEN [Concomitant]
     Indication: ARTHRALGIA
     Route: 048
  3. VALPRO [Concomitant]
     Indication: ARTHRALGIA
     Route: 048
  4. ALLOPURINOL [Concomitant]
     Indication: GOUT
     Route: 048
  5. FLUOXETINE [Concomitant]
     Route: 065
  6. KARVEZIDE [Concomitant]
     Dosage: 300MG/12.5
     Route: 065
  7. VYTORIN [Concomitant]
     Dosage: 10/80MG
     Route: 065

REACTIONS (1)
  - Myocardial infarction [Unknown]
